FAERS Safety Report 4747878-X (Version None)
Quarter: 2005Q3

REPORT INFORMATION
  Report Type: 
  Country: None (occurrence: None)
  Receive Date: 20050816
  Receipt Date: 20050805
  Transmission Date: 20060218
  Serious: Yes (Other)
  Sender: FDA-Public Use
  Company Number: THQ2005A00726

PATIENT
  Age: 46 Year
  Sex: Female

DRUGS (3)
  1. ACTOS [Suspect]
     Indication: DIABETES MELLITUS NON-INSULIN-DEPENDENT
     Dosage: 30 MG (30 MG, 1 IN 1 D) PER ORAL
     Route: 048
     Dates: start: 20040101, end: 20050718
  2. DIANBEN (METFORMIN HYDROCHLORIDE) [Concomitant]
  3. KARVEA (IRBESARTAN) [Concomitant]

REACTIONS (8)
  - ARTHRALGIA [None]
  - ARTHRITIS [None]
  - BEDRIDDEN [None]
  - IMMUNE SYSTEM DISORDER [None]
  - INFLAMMATION [None]
  - JOINT CONTRACTURE [None]
  - PAIN [None]
  - TENDONITIS [None]
